APPROVED DRUG PRODUCT: DEFEROXAMINE MESYLATE
Active Ingredient: DEFEROXAMINE MESYLATE
Strength: 2GM/VIAL
Dosage Form/Route: INJECTABLE;INJECTION
Application: A076806 | Product #002
Applicant: DR REDDYS LABORATORIES LTD
Approved: Mar 31, 2006 | RLD: No | RS: No | Type: DISCN